FAERS Safety Report 4626640-2 (Version None)
Quarter: 2005Q1

REPORT INFORMATION
  Report Type: 
  Country: None (occurrence: None)
  Receive Date: 20050330
  Receipt Date: 20050318
  Transmission Date: 20050727
  Serious: Yes (Other)
  Sender: FDA-Public Use
  Company Number: HQWYE207121MAR05

PATIENT
  Sex: Male
  Weight: 124.85 kg

DRUGS (26)
  1. PREMARIN [Suspect]
     Indication: CONVULSION
     Dosage: ORAL
     Route: 048
  2. PREMARIN [Suspect]
     Indication: LIBIDO DECREASED
     Dosage: ORAL
     Route: 048
  3. ESTINYL                 (ETHINYLESTRADIOL) [Suspect]
     Indication: CONVULSION
  4. ESTINYL                 (ETHINYLESTRADIOL) [Suspect]
     Indication: LIBIDO DECREASED
  5. ESTRADIOL [Suspect]
     Indication: CONVULSION
  6. ESTRADIOL [Suspect]
     Indication: LIBIDO DECREASED
  7. ORAL CONTRACEPTIVE NOS                 (ORAL CONTRACEPTIVE NOS) [Suspect]
     Indication: CONVULSION
  8. ORAL CONTRACEPTIVE NOS                 (ORAL CONTRACEPTIVE NOS) [Suspect]
     Indication: LIBIDO DECREASED
  9. PREMPRO [Suspect]
     Indication: CONVULSION
     Dosage: 4 TABLETS OF 0.625MG / 2.5 MG DAILY, ORAL
     Route: 048
  10. PREMPRO [Suspect]
     Indication: LIBIDO DECREASED
     Dosage: 4 TABLETS OF 0.625MG / 2.5 MG DAILY, ORAL
     Route: 048
  11. PROVERA [Suspect]
     Indication: CONVULSION
  12. PROVERA [Suspect]
     Indication: LIBIDO DECREASED
  13. TEGRETOL [Concomitant]
  14. HYDROCHLOROTHIAZIDE [Concomitant]
  15. AMITRIPTYLINE HCL [Concomitant]
  16. GLUCOPHAGE [Concomitant]
  17. DOXAZOSIN (DOXAZOSIN) [Concomitant]
  18. KLONOPIN [Concomitant]
  19. MIRAPEX [Concomitant]
  20. ADVAIR              (FLUTICASONE PROPIONATE/SALMETEROL XINAFOATE) [Concomitant]
  21. ALBUTEROL [Concomitant]
  22. LEVOTHYROXINE SODIUM [Concomitant]
  23. CAPTOPRIL [Concomitant]
  24. CYANOCOBALAMIN [Concomitant]
  25. VITAMINS (VITAMINS) [Concomitant]
  26. LEXAPRO [Concomitant]

REACTIONS (11)
  - ALOPECIA [None]
  - BLOOD TESTOSTERONE INCREASED [None]
  - BREAST DISCHARGE [None]
  - BREAST TENDERNESS [None]
  - CRYING [None]
  - CUSHING'S SYNDROME [None]
  - EMOTIONAL DISORDER [None]
  - GYNAECOMASTIA [None]
  - HYPOVENTILATION [None]
  - LIBIDO DECREASED [None]
  - RESPIRATORY RATE INCREASED [None]
